FAERS Safety Report 6846984-3 (Version None)
Quarter: 2010Q3

REPORT INFORMATION
  Report Type: 
  Country: None (occurrence: None)
  Receive Date: 20100713
  Receipt Date: 20100706
  Transmission Date: 20110219
  Serious: Yes (Hospitalization)
  Sender: FDA-Public Use
  Company Number: 2010SP037488

PATIENT
  Age: 73 Year
  Sex: Female

DRUGS (4)
  1. REXER (MIRTAZAPINE /01293201/) (30 MG) [Suspect]
     Indication: DEPRESSION
     Dosage: 60 MG; QD; PO
     Route: 048
     Dates: start: 20080101, end: 20100411
  2. DISTRANEURINE (CLOMETHIAZOLE EDISILATE) [Suspect]
     Indication: INSOMNIA
     Dosage: ; PO
     Route: 048
     Dates: start: 20080101, end: 20100402
  3. ZYPREXA [Suspect]
     Indication: DEPRESSION
     Dosage: 10 MG; QD; PO, 5 MG; QD; PO
     Route: 048
     Dates: start: 20100301, end: 20100402
  4. ZYPREXA [Suspect]
     Indication: DEPRESSION
     Dosage: 10 MG; QD; PO, 5 MG; QD; PO
     Route: 048
     Dates: start: 20100201, end: 20100411

REACTIONS (3)
  - AGITATION [None]
  - FALL [None]
  - HIP FRACTURE [None]
